FAERS Safety Report 7717826-9 (Version None)
Quarter: 2011Q3

REPORT INFORMATION
  Report Type: 
  Country: None (occurrence: None)
  Receive Date: 20110824
  Receipt Date: 20110815
  Transmission Date: 20111222
  Serious: Yes (Other)
  Sender: FDA-Public Use
  Company Number: 2011SP037766

PATIENT
  Age: 37 Year
  Sex: Female

DRUGS (2)
  1. TRAZODONE HCL [Concomitant]
  2. SAPHRIS [Suspect]
     Indication: SCHIZOPHRENIA
     Dosage: 5 MG, QD, SL
     Route: 060
     Dates: start: 20110809, end: 20110810

REACTIONS (11)
  - THERAPEUTIC RESPONSE UNEXPECTED [None]
  - LOSS OF LIBIDO [None]
  - PALLOR [None]
  - FEELING ABNORMAL [None]
  - DRUG DOSE OMISSION [None]
  - WEIGHT INCREASED [None]
  - SKIN DISORDER [None]
  - ANGER [None]
  - EMOTIONAL DISORDER [None]
  - PRODUCT OUTER PACKAGING ISSUE [None]
  - AGGRESSION [None]
